FAERS Safety Report 5853568-2 (Version None)
Quarter: 2008Q3

REPORT INFORMATION
  Report Type: 
  Country: None (occurrence: None)
  Receive Date: 20080822
  Receipt Date: 20080818
  Transmission Date: 20090109
  Serious: Yes (Hospitalization, Other)
  Sender: FDA-Public Use
  Company Number: JP-BRISTOL-MYERS SQUIBB COMPANY-14258529

PATIENT
  Age: 53 Year
  Sex: Female

DRUGS (3)
  1. BRIPLATIN [Suspect]
     Indication: LUNG NEOPLASM MALIGNANT
     Dosage: CYC1:30JAN08(INITIATED 80%) CYC2:21FEB08(80%) CYC3:2APR08 CYC4:30APR08
     Route: 041
     Dates: start: 20080501, end: 20080501
  2. VINCRISTINE SULFATE [Suspect]
     Indication: LUNG NEOPLASM MALIGNANT
  3. NAVELBINE [Concomitant]
     Dosage: DOSE TAKEN ON 30JAN08 AND FROM  21FEB08 -MAY08
     Route: 041
     Dates: start: 20080130, end: 20080501

REACTIONS (3)
  - ANOREXIA [None]
  - NEUTROPENIA [None]
  - PROTEIN-LOSING GASTROENTEROPATHY [None]
